FAERS Safety Report 6602406-9 (Version None)
Quarter: 2010Q1

REPORT INFORMATION
  Report Type: 
  Country: None (occurrence: None)
  Receive Date: 20100225
  Receipt Date: 20100217
  Transmission Date: 20100710
  Serious: Yes (Hospitalization)
  Sender: FDA-Public Use
  Company Number: B0635973A

PATIENT
  Age: 62 Year
  Sex: Female

DRUGS (8)
  1. AVANDIA [Suspect]
     Dosage: 8MG PER DAY
     Route: 048
     Dates: start: 20050901, end: 20090501
  2. BONIVA [Concomitant]
     Indication: OSTEOPOROSIS
  3. DIFORMIN [Concomitant]
  4. PERSANTIN DEPOT [Concomitant]
  5. ASPIRIN [Concomitant]
  6. SIFROL [Concomitant]
  7. SIMVASTATIN [Concomitant]
  8. IDEOS [Concomitant]

REACTIONS (8)
  - FALL [None]
  - FRACTURED SACRUM [None]
  - GAIT DISTURBANCE [None]
  - INJURY [None]
  - OSTEOPOROSIS [None]
  - OSTEOPOROTIC FRACTURE [None]
  - PAIN [None]
  - PELVIC FRACTURE [None]
